FAERS Safety Report 4695516-7 (Version None)
Quarter: 2005Q2

REPORT INFORMATION
  Report Type: 
  Country: None (occurrence: None)
  Receive Date: 20050608
  Receipt Date: 20050317
  Transmission Date: 20051028
  Serious: Yes (Other)
  Sender: FDA-Public Use
  Company Number: A03200500755

PATIENT
  Sex: Male

DRUGS (4)
  1. ELOXATIN [Suspect]
     Indication: RECTAL CANCER METASTATIC
     Dosage: INTRAVENOUS NOS
     Route: 042
     Dates: start: 20050301, end: 20050301
  2. CETUXIMAB [Suspect]
     Indication: RECTAL CANCER METASTATIC
     Dosage: INTRAVENOUS NOS
     Route: 042
     Dates: start: 20050301, end: 20050301
  3. FLUOROURACIL [Concomitant]
  4. LEUCOVORIN [Concomitant]

REACTIONS (4)
  - ANAPHYLACTIC SHOCK [None]
  - METABOLIC ACIDOSIS [None]
  - NEUROPATHY [None]
  - OBSTRUCTIVE AIRWAYS DISORDER [None]
